FAERS Safety Report 6742206-2 (Version None)
Quarter: 2010Q2

REPORT INFORMATION
  Report Type: 
  Country: None (occurrence: None)
  Receive Date: 20100526
  Receipt Date: 20100517
  Transmission Date: 20101027
  Serious: Yes (Other)
  Sender: FDA-Public Use
  Company Number: GXKR2010BR05595

PATIENT
  Sex: Female

DRUGS (9)
  1. AMLODIPINE BESYLATE (NGX) [Suspect]
     Indication: HYPERTENSION
     Dosage: 10 MG, QD
     Route: 048
  2. CAPTOPRIL (NGX) [Suspect]
     Indication: HYPERTENSION
     Dosage: 1 DF, Q8H
     Route: 048
  3. ATENOLOL (NGX) [Suspect]
     Indication: HYPERTENSION
     Dosage: 100 MG, QD
     Route: 048
  4. ATENOLOL (NGX) [Suspect]
     Dosage: 100 MG, BID
     Route: 048
  5. HYDROCHLOROTHIAZIDE [Concomitant]
     Indication: HYPERTENSION
     Dosage: 25 MG, QD
     Route: 048
  6. SIMVASTATIN [Concomitant]
     Dosage: 80 MG, QD
     Route: 048
  7. DIOVAN HCT [Concomitant]
     Indication: HYPERTENSION
     Dosage: 1 DF, BID
     Route: 048
  8. ZETIA [Concomitant]
     Dosage: 10 MG, QD
     Route: 048
  9. ASPIRIN [Concomitant]
     Dosage: 1 DF, QD
     Route: 048

REACTIONS (3)
  - DRUG INEFFECTIVE [None]
  - LOW DENSITY LIPOPROTEIN INCREASED [None]
  - OEDEMA PERIPHERAL [None]
